FAERS Safety Report 5405006-1 (Version None)
Quarter: 2007Q3

REPORT INFORMATION
  Report Type: 
  Country: None (occurrence: None)
  Receive Date: 20070801
  Receipt Date: 20070719
  Transmission Date: 20080115
  Serious: Yes (Death, Hospitalization)
  Sender: FDA-Public Use
  Company Number: CERZ-11758

PATIENT
  Age: 84 Year
  Sex: Male
  Weight: 89 kg

DRUGS (1)
  1. CEREZYME [Suspect]
     Indication: GAUCHER'S DISEASE
     Dosage: 60.83 U/KG Q3WKS IV
     Route: 042
     Dates: start: 20070501

REACTIONS (2)
  - CROHN'S DISEASE [None]
  - GASTROINTESTINAL INFECTION [None]
